FAERS Safety Report 16240751 (Version 2)
Quarter: 2019Q2

REPORT INFORMATION
  Report Type: Spontaneous
  Country: US (occurrence: US)
  Receive Date: 20190425
  Receipt Date: 20190430
  Transmission Date: 20190711
  Serious: Yes (Other)
  Sender: FDA-Public Use
  Company Number: US-PFIZER INC-2019172179

PATIENT
  Age: 6 Year
  Sex: Female

DRUGS (7)
  1. METHOTREXATE SODIUM. [Suspect]
     Active Substance: METHOTREXATE SODIUM
     Dosage: UNK (RECEIVED HER SIXTH PULSE)
     Route: 037
     Dates: start: 19700924
  2. VINCRISTINE [Concomitant]
     Active Substance: VINCRISTINE
     Indication: ACUTE LYMPHOCYTIC LEUKAEMIA
     Dosage: UNK (INDUCTION THERAPY) (PULSES OF 1.5 MG PER SQ.M) (GIVEN EVERY 3 MONTHS)
     Route: 042
     Dates: start: 196811
  3. CYCLOPHOSPHAMIDE. [Concomitant]
     Active Substance: CYCLOPHOSPHAMIDE
     Indication: ACUTE LYMPHOCYTIC LEUKAEMIA
     Dosage: UNK (MAINTAINED)
     Route: 048
     Dates: start: 196811
  4. 6-MERCAPTOPURINE MONOHYDRATE [Concomitant]
     Active Substance: MERCAPTOPURINE
     Indication: ACUTE LYMPHOCYTIC LEUKAEMIA
     Dosage: UNK
     Dates: start: 196811
  5. METHOTREXATE SODIUM. [Suspect]
     Active Substance: METHOTREXATE SODIUM
     Indication: ACUTE LYMPHOCYTIC LEUKAEMIA
     Dosage: 105 MG, UNK(NO OF TREATMENT: 6, DOSE PER TREATMENT: 12/M2)
     Route: 037
  6. PREDNISONE. [Concomitant]
     Active Substance: PREDNISONE
     Indication: ACUTE LYMPHOCYTIC LEUKAEMIA
     Dosage: UNK (INDUCTION THERAPY) (PULSES OF 1000 MG PER SQ M IN 3 DIVIDED DOSES) (GIVEN EVERY 3 MONTHS)
     Route: 048
     Dates: start: 196811
  7. METHOTREXATE SODIUM. [Suspect]
     Active Substance: METHOTREXATE SODIUM
     Dosage: UNK (PULSES OF 12 MG PER SQ M) (GIVEN EVERY 3 MONTHS)
     Route: 037
     Dates: start: 196811

REACTIONS (2)
  - Paraplegia [Not Recovered/Not Resolved]
  - Quadriplegia [Not Recovered/Not Resolved]

NARRATIVE: CASE EVENT DATE: 1970
